FAERS Safety Report 19999276 (Version 1)
Quarter: 2021Q4

REPORT INFORMATION
  Report Type: Spontaneous
  Country: NL (occurrence: NL)
  Receive Date: 20211026
  Receipt Date: 20211026
  Transmission Date: 20220303
  Serious: Yes (Death)
  Sender: FDA-Public Use
  Company Number: NL-BIOGEN-2021BI01061488

PATIENT
  Age: 52 Year
  Sex: Male

DRUGS (1)
  1. DALFAMPRIDINE [Suspect]
     Active Substance: DALFAMPRIDINE
     Indication: Gait disturbance
     Route: 048
     Dates: start: 20210419, end: 20211007

REACTIONS (1)
  - Death [Fatal]

NARRATIVE: CASE EVENT DATE: 20211007
